FAERS Safety Report 17769367 (Version 1)
Quarter: 2020Q2

REPORT INFORMATION
  Report Type: Spontaneous
  Country: CA (occurrence: CA)
  Receive Date: 20200512
  Receipt Date: 20200512
  Transmission Date: 20200714
  Serious: Yes (Hospitalization)
  Sender: FDA-Public Use
  Company Number: CA-TEVA-2020-CA-1233352

PATIENT
  Age: 9 Year
  Sex: Female
  Weight: 29 kg

DRUGS (15)
  1. METOCLOPRAMIDE. [Concomitant]
     Active Substance: METOCLOPRAMIDE
  2. CARBOPLATIN. [Suspect]
     Active Substance: CARBOPLATIN
     Indication: NEOPLASM
     Route: 042
  3. ACETAMINOPHEN. [Concomitant]
     Active Substance: ACETAMINOPHEN
  4. HEPARIN SODIUM. [Concomitant]
     Active Substance: HEPARIN SODIUM
  5. HYDROCORTISONE. [Concomitant]
     Active Substance: HYDROCORTISONE
  6. ETOPOSIDE. [Suspect]
     Active Substance: ETOPOSIDE
     Indication: NEOPLASM
     Route: 042
  7. IFOSFAMIDE FOR INJECTION, USP [Suspect]
     Active Substance: IFOSFAMIDE
     Indication: NEOPLASM
     Route: 042
  8. DIPHENHYDRAMINE. [Concomitant]
     Active Substance: DIPHENHYDRAMINE
  9. PENTAMIDINE ISETHIONATE INJ 300MG/VIAL BP [Concomitant]
  10. VANCOMYCIN [Concomitant]
     Active Substance: VANCOMYCIN
  11. MESNA. [Concomitant]
     Active Substance: MESNA
  12. DEXAMETHASONE. [Concomitant]
     Active Substance: DEXAMETHASONE
  13. DIMENHYDRINATE. [Concomitant]
     Active Substance: DIMENHYDRINATE
  14. NEUPOGEN [Concomitant]
     Active Substance: FILGRASTIM
  15. ONDANSETRON [Concomitant]
     Active Substance: ONDANSETRON

REACTIONS (2)
  - Pancytopenia [Recovering/Resolving]
  - Febrile neutropenia [Recovering/Resolving]
